FAERS Safety Report 6541717-2 (Version None)
Quarter: 2010Q1

REPORT INFORMATION
  Report Type: 
  Country: None (occurrence: None)
  Receive Date: 20100119
  Receipt Date: 20100104
  Transmission Date: 20100710
  Serious: Yes (Death)
  Sender: FDA-Public Use
  Company Number: US-BAYER-201011882GPV

PATIENT
  Age: 97 Year
  Sex: Female

DRUGS (1)
  1. NAPROXEN [Suspect]
     Route: 048

REACTIONS (1)
  - DRUG TOXICITY [None]
